FAERS Safety Report 8773028 (Version 3)
Quarter: 2012Q4

REPORT INFORMATION
  Report Type: 
  Country: FR (occurrence: FR)
  Receive Date: 20120907
  Receipt Date: 20120924
  Transmission Date: 20130627
  Serious: Yes (Other)
  Sender: FDA-Public Use
  Company Number: FR-JNJFOC-20120900505

PATIENT
  Age: 16 Year
  Sex: Male

DRUGS (8)
  1. ACTIFED [Suspect]
     Indication: NASOPHARYNGITIS
     Route: 048
     Dates: start: 20120829, end: 20120829
  2. ACTIFED [Suspect]
     Indication: NASOPHARYNGITIS
     Route: 048
     Dates: start: 20120829, end: 20120829
  3. AN UNKNOWN MEDICATION [Concomitant]
     Indication: INFLUENZA LIKE ILLNESS
     Route: 048
  4. AN UNKNOWN MEDICATION [Concomitant]
     Indication: INFLUENZA LIKE ILLNESS
     Route: 048
     Dates: start: 20120828, end: 20120828
  5. INSULIN INJECTION [Concomitant]
     Indication: TYPE 1 DIABETES MELLITUS
     Route: 065
  6. LEVEMIR [Concomitant]
     Indication: TYPE 1 DIABETES MELLITUS
     Route: 065
  7. NOVOMIX [Concomitant]
     Indication: TYPE 1 DIABETES MELLITUS
     Route: 065
  8. NOVORAPID [Concomitant]
     Indication: TYPE 1 DIABETES MELLITUS
     Route: 065

REACTIONS (4)
  - Hyperglycaemia [Recovered/Resolved]
  - Aggression [Recovered/Resolved]
  - Hyperhidrosis [Recovered/Resolved]
  - Headache [Recovered/Resolved]
